FAERS Safety Report 15804606 (Version 1)
Quarter: 2019Q1

REPORT INFORMATION
  Report Type: Spontaneous
  Country: IL (occurrence: US)
  Receive Date: 20190109
  Receipt Date: 20190109
  Transmission Date: 20190417
  Serious: No
  Sender: FDA-Public Use
  Company Number: US-SLATE RUN PHARMACEUTICALS-SLTR-AE-18-17

PATIENT
  Age: 66 Year
  Sex: Female

DRUGS (5)
  1. BUSPIRON [Concomitant]
     Active Substance: BUSPIRONE HYDROCHLORIDE
  2. SALBUTAMOL INHALER [Concomitant]
  3. DIAZEPAM. [Concomitant]
     Active Substance: DIAZEPAM
  4. BUPROPION HYDROCHLORIDE ER TABLET USP [Suspect]
     Active Substance: BUPROPION HYDROCHLORIDE
     Indication: DEPRESSION
  5. ASPIRIN. [Concomitant]
     Active Substance: ASPIRIN

REACTIONS (1)
  - Tic [Recovered/Resolved]
